FAERS Safety Report 12060271 (Version 1)
Quarter: 2016Q1

REPORT INFORMATION
  Report Type: Spontaneous
  Country: US (occurrence: US)
  Receive Date: 20160210
  Receipt Date: 20160210
  Transmission Date: 20160526
  Serious: Yes (Other)
  Sender: FDA-Public Use
  Company Number: US-SHIRE-US201601036

PATIENT
  Sex: Male
  Weight: 57.6 kg

DRUGS (3)
  1. PENTASA [Suspect]
     Active Substance: MESALAMINE
     Indication: CROHN^S DISEASE
     Dosage: UNK, UNKNOWN
     Route: 048
     Dates: start: 2012
  2. HUMIRA [Suspect]
     Active Substance: ADALIMUMAB
     Indication: CROHN^S DISEASE
     Dosage: 40 MG, 1X/2WKS
     Route: 065
     Dates: start: 201508
  3. PENTASA [Suspect]
     Active Substance: MESALAMINE
     Dosage: UNK, UNKNOWN
     Route: 048
     Dates: start: 201508, end: 20160127

REACTIONS (5)
  - Drug administered to patient of inappropriate age [Recovered/Resolved]
  - Drug interaction [Recovered/Resolved]
  - Drug ineffective [Recovered/Resolved]
  - Product use issue [Recovered/Resolved]
  - Clostridium difficile infection [Unknown]

NARRATIVE: CASE EVENT DATE: 2012
